FAERS Safety Report 16679644 (Version 1)
Quarter: 2019Q3

REPORT INFORMATION
  Report Type: Spontaneous
  Country: HR (occurrence: HR)
  Receive Date: 20190807
  Receipt Date: 20190807
  Transmission Date: 20191004
  Serious: Yes (Other)
  Sender: FDA-Public Use
  Company Number: HR-TEVA-2019-HR-1089341

PATIENT
  Age: 13 Year
  Sex: Female

DRUGS (2)
  1. DIAZEPAM. [Suspect]
     Active Substance: DIAZEPAM
     Route: 048
     Dates: start: 20190617, end: 20190617
  2. RISPERIDONUM [Suspect]
     Active Substance: RISPERIDONE
     Route: 048
     Dates: start: 20190617, end: 20190617

REACTIONS (2)
  - No adverse event [Unknown]
  - Suicide attempt [Unknown]

NARRATIVE: CASE EVENT DATE: 20190617
